FAERS Safety Report 15022973 (Version 2)
Quarter: 2021Q3

REPORT INFORMATION
  Report Type: Spontaneous
  Country: RO (occurrence: RO)
  Receive Date: 20180618
  Receipt Date: 20210915
  Transmission Date: 20211014
  Serious: Yes (Hospitalization, Other)
  Sender: FDA-Public Use
  Company Number: RO-ABBVIE-17P-135-2186830-00

PATIENT
  Age: 5 Year
  Sex: Female

DRUGS (5)
  1. LAMOTRIGINE. [Interacting]
     Active Substance: LAMOTRIGINE
     Indication: EPILEPSY
     Dosage: WEEK 1
     Route: 065
  2. LAMOTRIGINE. [Interacting]
     Active Substance: LAMOTRIGINE
     Route: 065
  3. DEPAKINE [Suspect]
     Active Substance: VALPROATE SODIUM
     Indication: EPILEPSY
     Dosage: WEEK 1 ? 2 X 25 MG/DAY, WEEK 3 ?2 X 50 MG/DAY; UNKNOWN
     Route: 065
  4. LAMOTRIGINE. [Interacting]
     Active Substance: LAMOTRIGINE
     Dosage: WEEK 3
     Route: 065
  5. LAMOTRIGINE. [Interacting]
     Active Substance: LAMOTRIGINE
     Route: 065

REACTIONS (24)
  - Rotavirus infection [Recovering/Resolving]
  - Vomiting [Recovering/Resolving]
  - Pyrexia [Recovering/Resolving]
  - Conjunctival hyperaemia [Recovering/Resolving]
  - Rash maculo-papular [Recovering/Resolving]
  - Chapped lips [Recovering/Resolving]
  - Abdominal pain [Recovering/Resolving]
  - Gastroenteritis norovirus [Recovering/Resolving]
  - Rash [Recovering/Resolving]
  - Dysphagia [Recovering/Resolving]
  - Salivary hypersecretion [Recovering/Resolving]
  - Stevens-Johnson syndrome [Recovered/Resolved]
  - Diarrhoea [Recovering/Resolving]
  - Pharyngeal inflammation [Recovering/Resolving]
  - Partial seizures [Recovered/Resolved]
  - Lip dry [Recovering/Resolving]
  - Drug interaction [Unknown]
  - Facial pain [Recovering/Resolving]
  - Drug ineffective [Recovering/Resolving]
  - Rash vesicular [Recovering/Resolving]
  - Pruritus [Recovering/Resolving]
  - Dermatitis bullous [Recovering/Resolving]
  - Condition aggravated [Recovering/Resolving]
  - Haemorrhage [Recovering/Resolving]
